FAERS Safety Report 11965252 (Version 1)
Quarter: 2016Q1

REPORT INFORMATION
  Report Type: Spontaneous
  Country: GB (occurrence: GB)
  Receive Date: 20160127
  Receipt Date: 20160127
  Transmission Date: 20160526
  Serious: Yes (Other)
  Sender: FDA-Public Use
  Company Number: GB-ACCORD-037169

PATIENT
  Age: 25 Year
  Sex: Female
  Weight: 66.67 kg

DRUGS (3)
  1. TRAMADOL. [Concomitant]
     Active Substance: TRAMADOL
  2. MORPHINE [Concomitant]
     Active Substance: MORPHINE
     Route: 048
  3. AMITRIPTYLINE [Suspect]
     Active Substance: AMITRIPTYLINE
     Indication: NEURALGIA
     Route: 048

REACTIONS (3)
  - Dizziness postural [Not Recovered/Not Resolved]
  - Insomnia [Not Recovered/Not Resolved]
  - Non-24-hour sleep-wake disorder [Not Recovered/Not Resolved]
